FAERS Safety Report 9030590 (Version 3)
Quarter: 2013Q1

REPORT INFORMATION
  Report Type: Report from Study
  Country: HU (occurrence: HU)
  Receive Date: 20130123
  Receipt Date: 20130320
  Transmission Date: 20140127
  Serious: Yes (Hospitalization)
  Sender: FDA-Public Use
  Company Number: HU-SHIRE-ALL1-2013-00167

PATIENT
  Age: 15 Year
  Sex: Male
  Weight: 53.5 kg

DRUGS (2)
  1. 489 (LISDEXAMFETAMINE DIMESYLATE) [Suspect]
     Indication: ATTENTION DEFICIT/HYPERACTIVITY DISORDER
     Dosage: 70 MG, 1X/DAY:QD
     Route: 048
     Dates: start: 20120502, end: 20130110
  2. 489 (LISDEXAMFETAMINE DIMESYLATE) [Suspect]
     Dosage: UNK, UNKNOWN
     Route: 048
     Dates: start: 20111026

REACTIONS (2)
  - Arrhythmia [Recovered/Resolved]
  - Subdural haematoma [Recovered/Resolved]
